FAERS Safety Report 6583189-8 (Version None)
Quarter: 2010Q1

REPORT INFORMATION
  Report Type: 
  Country: None (occurrence: None)
  Receive Date: 20100216
  Receipt Date: 20100205
  Transmission Date: 20100710
  Serious: Yes (Disabling)
  Sender: FDA-Public Use
  Company Number: DE-ROCHE-685330

PATIENT
  Sex: Female
  Weight: 68 kg

DRUGS (2)
  1. XELODA [Suspect]
     Dosage: FIRST LINE IN COMBINATION WITH ZOLEDRONIC ACID
     Route: 048
     Dates: start: 20100101
  2. ZOMETA [Concomitant]

REACTIONS (1)
  - SUDDEN HEARING LOSS [None]
